FAERS Safety Report 24580444 (Version 2)
Quarter: 2024Q4

REPORT INFORMATION
  Report Type: Spontaneous
  Country: US (occurrence: US)
  Receive Date: 20241105
  Receipt Date: 20241112
  Transmission Date: 20250115
  Serious: Yes (Other)
  Sender: PFIZER
  Company Number: US-PFIZER INC-PV202400141858

PATIENT
  Sex: Female

DRUGS (1)
  1. TIVDAK [Suspect]
     Active Substance: TISOTUMAB VEDOTIN-TFTV
     Dosage: 2 MG/KG IV Q3 WEEKS
     Route: 042

REACTIONS (2)
  - Peripheral motor neuropathy [Unknown]
  - Paralysis [Unknown]

NARRATIVE: CASE EVENT DATE: 20241001
